FAERS Safety Report 5591434-0 (Version None)
Quarter: 2008Q1

REPORT INFORMATION
  Report Type: 
  Country: None (occurrence: None)
  Receive Date: 20080115
  Receipt Date: 20080103
  Transmission Date: 20080703
  Serious: Yes (Hospitalization)
  Sender: FDA-Public Use
  Company Number: CA-GENENTECH-254063

PATIENT
  Age: 63 Year
  Sex: Male
  Weight: 90.7 kg

DRUGS (3)
  1. RITUXAN [Suspect]
     Indication: LYMPHOPLASMACYTOID LYMPHOMA/IMMUNOCYTOMA
     Dosage: 375 MG/M2, 1/MONTH
     Route: 042
     Dates: start: 20061215, end: 20070501
  2. RITUXAN [Suspect]
     Dosage: 375 MG/M2, Q3M
     Route: 042
     Dates: start: 20070801, end: 20071101
  3. FLUDARABINE PHOSPHATE [Concomitant]
     Indication: DRUG USE FOR UNKNOWN INDICATION
     Dates: start: 20061215

REACTIONS (1)
  - BROWN-SEQUARD SYNDROME [None]
